FAERS Safety Report 4487751-8 (Version None)
Quarter: 2004Q4

REPORT INFORMATION
  Report Type: 
  Country: None (occurrence: None)
  Receive Date: 20041025
  Receipt Date: 20041011
  Transmission Date: 20050328
  Serious: Yes (Other)
  Sender: FDA-Public Use
  Company Number: 200952

PATIENT
  Sex: Female

DRUGS (7)
  1. AVONEX [Suspect]
     Indication: MULTIPLE SCLEROSIS
  2. LEXAPRO [Concomitant]
  3. ATACAND [Concomitant]
  4. TOPROL-XL [Concomitant]
  5. LASIX [Concomitant]
  6. POTASSIUM [Concomitant]
  7. BIRTH CONTROL PILLS [Concomitant]

REACTIONS (1)
  - SWEAT GLAND INFECTION [None]
